FAERS Safety Report 8303182-4 (Version None)
Quarter: 2012Q2

REPORT INFORMATION
  Report Type: 
  Country: None (occurrence: None)
  Receive Date: 20120423
  Receipt Date: 20120410
  Transmission Date: 20120825
  Serious: No
  Sender: FDA-Public Use
  Company Number: US-BIOGENIDEC-2011BI039047

PATIENT
  Age: 32 Year
  Sex: Male

DRUGS (2)
  1. TYSABRI [Suspect]
     Route: 042
     Dates: start: 20111010, end: 20120201
  2. TYSABRI [Suspect]
     Indication: MULTIPLE SCLEROSIS
     Route: 042
     Dates: start: 20061006, end: 20081204

REACTIONS (7)
  - MULTIPLE SCLEROSIS [None]
  - TONGUE PARALYSIS [None]
  - HEADACHE [None]
  - BALANCE DISORDER [None]
  - VISION BLURRED [None]
  - FATIGUE [None]
  - DYSPNOEA [None]
